FAERS Safety Report 5684785-2 (Version None)
Quarter: 2008Q1

REPORT INFORMATION
  Report Type: 
  Country: None (occurrence: None)
  Receive Date: 20080328
  Receipt Date: 20070918
  Transmission Date: 20080703
  Serious: No
  Sender: FDA-Public Use
  Company Number: US-BRISTOL-MYERS SQUIBB COMPANY-13912738

PATIENT
  Age: 80 Year
  Sex: Female

DRUGS (1)
  1. ERBITUX [Suspect]
     Dosage: INFUSION RATE OF 8.5 ML/MIN
     Route: 042

REACTIONS (2)
  - MEDICATION ERROR [None]
  - NO ADVERSE EVENT [None]
